FAERS Safety Report 20818456 (Version 1)
Quarter: 2022Q2

REPORT INFORMATION
  Report Type: Spontaneous
  Country: US (occurrence: US)
  Receive Date: 20220512
  Receipt Date: 20220512
  Transmission Date: 20220721
  Serious: No
  Sender: FDA-Public Use
  Company Number: US-PFIZER INC-202200124002

PATIENT
  Age: 67 Year
  Sex: Male

DRUGS (2)
  1. XELJANZ [Suspect]
     Active Substance: TOFACITINIB CITRATE
     Indication: Colitis ulcerative
     Dosage: 10 MG, 2X/DAY
     Route: 048
     Dates: start: 20220112
  2. MESALAMINE [Concomitant]
     Active Substance: MESALAMINE
     Dosage: 4 DF, DAILY (4 TABLETS DAILY, DOSE UNAVAILABLE)

REACTIONS (2)
  - Headache [Recovered/Resolved]
  - Illness [Unknown]

NARRATIVE: CASE EVENT DATE: 20220101
